FAERS Safety Report 24997150 (Version 1)
Quarter: 2025Q1

REPORT INFORMATION
  Report Type: Spontaneous
  Country: CN (occurrence: CN)
  Receive Date: 20250221
  Receipt Date: 20250221
  Transmission Date: 20250408
  Serious: Yes (Hospitalization)
  Sender: BEIGENE
  Company Number: CN-BEIGENE-BGN-2025-002487

PATIENT
  Age: 74 Year
  Weight: 65 kg

DRUGS (10)
  1. TISLELIZUMAB [Suspect]
     Active Substance: TISLELIZUMAB
     Indication: Oesophageal carcinoma
  2. TISLELIZUMAB [Suspect]
     Active Substance: TISLELIZUMAB
     Route: 041
  3. TISLELIZUMAB [Suspect]
     Active Substance: TISLELIZUMAB
     Route: 041
  4. TISLELIZUMAB [Suspect]
     Active Substance: TISLELIZUMAB
  5. CISPLATIN [Suspect]
     Active Substance: CISPLATIN
     Indication: Oesophageal carcinoma
     Dosage: 100 MILLIGRAM, QD
  6. CISPLATIN [Suspect]
     Active Substance: CISPLATIN
     Dosage: 100 MILLIGRAM, QD
     Route: 041
  7. CISPLATIN [Suspect]
     Active Substance: CISPLATIN
     Dosage: 100 MILLIGRAM, QD
     Route: 041
  8. CISPLATIN [Suspect]
     Active Substance: CISPLATIN
     Dosage: 100 MILLIGRAM, QD
  9. PACLITAXEL [Suspect]
     Active Substance: PACLITAXEL
     Indication: Oesophageal carcinoma
     Dosage: 0.3 GRAM, QD
     Route: 041
  10. PACLITAXEL [Suspect]
     Active Substance: PACLITAXEL
     Dosage: 0.3 GRAM, QD

REACTIONS (1)
  - Myelosuppression [Recovering/Resolving]
